FAERS Safety Report 14574247 (Version 2)
Quarter: 2018Q1

REPORT INFORMATION
  Report Type: Spontaneous
  Country: US (occurrence: US)
  Receive Date: 20180226
  Receipt Date: 20180302
  Transmission Date: 20180509
  Serious: No
  Sender: FDA-Public Use
  Company Number: US-ACTELION-A-NJ2018-168223

PATIENT
  Age: 17 Year
  Sex: Female
  Weight: 53.52 kg

DRUGS (4)
  1. REMODULIN [Concomitant]
     Active Substance: TREPROSTINIL
  2. ADCIRCA [Concomitant]
     Active Substance: TADALAFIL
  3. WARFARIN [Concomitant]
     Active Substance: WARFARIN
  4. OPSUMIT [Suspect]
     Active Substance: MACITENTAN
     Indication: PULMONARY ARTERIAL HYPERTENSION
     Dosage: 10 MG, QD
     Route: 048

REACTIONS (5)
  - Oxygen saturation decreased [Unknown]
  - Catheter site inflammation [Unknown]
  - Catheter site erythema [Unknown]
  - Chest pain [Unknown]
  - Malaise [Unknown]

NARRATIVE: CASE EVENT DATE: 20180221
